FAERS Safety Report 5638616-7 (Version None)
Quarter: 2008Q1

REPORT INFORMATION
  Report Type: 
  Country: None (occurrence: None)
  Receive Date: 20080226
  Receipt Date: 20071022
  Transmission Date: 20080703
  Serious: No
  Sender: FDA-Public Use
  Company Number: A0664021A

PATIENT
  Age: 43 Year
  Sex: Female

DRUGS (8)
  1. IMITREX [Suspect]
     Indication: MIGRAINE
     Dosage: 6MG AS REQUIRED
     Route: 058
     Dates: start: 20000801
  2. TOPAMAX [Concomitant]
  3. RELAFEN [Concomitant]
  4. IMITREX [Concomitant]
  5. UNKNOWN MEDICATION [Concomitant]
  6. LORTAB [Concomitant]
  7. STOOL SOFTENER [Concomitant]
  8. VITAMINS [Concomitant]

REACTIONS (4)
  - BACK DISORDER [None]
  - DRUG INEFFECTIVE [None]
  - INJECTION SITE IRRITATION [None]
  - PHARMACEUTICAL PRODUCT COMPLAINT [None]
